FAERS Safety Report 4959720-2 (Version None)
Quarter: 2006Q1

REPORT INFORMATION
  Report Type: 
  Country: None (occurrence: None)
  Receive Date: 20060327
  Receipt Date: 20060315
  Transmission Date: 20060701
  Serious: Yes (Hospitalization)
  Sender: FDA-Public Use
  Company Number: 221251

PATIENT
  Age: 61 Year
  Sex: Male

DRUGS (3)
  1. RITUXIMAB(RITUXIMAB) CONC FOR SOLUTION FOR INFUSION [Suspect]
     Indication: NON-HODGKIN'S LYMPHOMA
     Dosage: 660 MG, 1/WEEK, INTRAVENOUS
     Route: 042
     Dates: start: 20051122, end: 20051213
  2. DIAZEPAM [Concomitant]
  3. OMEPRAZOLE [Concomitant]

REACTIONS (1)
  - MENINGITIS [None]
